FAERS Safety Report 14590037 (Version 7)
Quarter: 2020Q4

REPORT INFORMATION
  Report Type: Spontaneous
  Country: GB (occurrence: GB)
  Receive Date: 20180302
  Receipt Date: 20201117
  Transmission Date: 20210113
  Serious: Yes (Other)
  Sender: FDA-Public Use
  Company Number: GB-AUROBINDO-AUR-APL-2017-46914

PATIENT
  Age: 70 Year
  Sex: Male

DRUGS (3)
  1. METRONIDAZOLE. [Suspect]
     Active Substance: METRONIDAZOLE
     Indication: STOMA SITE INFECTION
     Dosage: UNK
     Route: 065
  2. DUODOPA [Suspect]
     Active Substance: CARBIDOPA\LEVODOPA
     Indication: PARKINSON^S DISEASE
     Dosage: 1 DOSAGE FORM, ONCE A DAY
     Route: 050
  3. DUODOPA [Suspect]
     Active Substance: CARBIDOPA\LEVODOPA
     Dosage: 1 DOSAGE FORM, ONCE A DAY (100ML CASSETTE)
     Route: 050

REACTIONS (14)
  - Stoma site discomfort [Unknown]
  - Stoma site haemorrhage [Unknown]
  - Stoma site infection [Recovering/Resolving]
  - Stoma site inflammation [Unknown]
  - Gait disturbance [Unknown]
  - Stoma site erythema [Not Recovered/Not Resolved]
  - Stoma site discharge [Unknown]
  - Paraesthesia [Unknown]
  - Wrong technique in device usage process [Unknown]
  - Mobility decreased [Unknown]
  - Fungal infection [Unknown]
  - Parkinson^s disease [Unknown]
  - Stoma site pain [Not Recovered/Not Resolved]
  - Pain [Unknown]

NARRATIVE: CASE EVENT DATE: 201711
